FAERS Safety Report 9559444 (Version 1)
Quarter: 2013Q2

REPORT INFORMATION
  Report Type: Spontaneous
  Country: US (occurrence: None)
  Receive Date: 20130617
  Receipt Date: 20130617
  Transmission Date: 20140414
  Serious: Yes (Other)
  Sender: FDA-Public Use
  Company Number: EUS-2013-00253

PATIENT
  Sex: Male

DRUGS (1)
  1. ASPARAGINASE (ASPARAGINASE) (UNKNOWN) [Suspect]
     Indication: ACUTE LYMPHOCYTIC LEUKAEMIA

REACTIONS (2)
  - Intracranial venous sinus thrombosis [None]
  - Cerebral venous thrombosis [None]
